FAERS Safety Report 20079112 (Version 1)
Quarter: 2021Q4

REPORT INFORMATION
  Report Type: Spontaneous
  Country: US (occurrence: US)
  Receive Date: 20211117
  Receipt Date: 20211117
  Transmission Date: 20220303
  Serious: No
  Sender: FDA-Public Use
  Company Number: US-ALLERGAN-2117411US

PATIENT
  Sex: Male

DRUGS (4)
  1. RAPAFLO [Suspect]
     Active Substance: SILODOSIN
     Indication: Benign prostatic hyperplasia
     Dosage: ACTUAL: ON AND OFF FOR THE PAST TWO YEARS
     Dates: start: 2019, end: 20210322
  2. RAPAFLO [Suspect]
     Active Substance: SILODOSIN
     Indication: Urinary retention
     Dosage: 4 MG, BID
     Dates: start: 20210322
  3. REMERON [Concomitant]
     Active Substance: MIRTAZAPINE
     Indication: Depression
  4. ZOPICLONE [Concomitant]
     Active Substance: ZOPICLONE
     Indication: Sleep disorder

REACTIONS (4)
  - Inappropriate schedule of product administration [Unknown]
  - Off label use [Unknown]
  - Dizziness [Not Recovered/Not Resolved]
  - Headache [Not Recovered/Not Resolved]

NARRATIVE: CASE EVENT DATE: 20190101
